FAERS Safety Report 20419303 (Version 1)
Quarter: 2022Q1

REPORT INFORMATION
  Report Type: Other
  Country: ID (occurrence: ID)
  Receive Date: 20220203
  Receipt Date: 20220203
  Transmission Date: 20220424
  Serious: Yes (Death)
  Sender: FDA-Public Use
  Company Number: ID-BoehringerIngelheim-2022-BI-150269

PATIENT
  Age: 59 Year
  Sex: Female

DRUGS (6)
  1. ALTEPLASE [Suspect]
     Active Substance: ALTEPLASE
     Indication: Ischaemic stroke
     Dosage: 0.9 MG/KG BODY WEIGHT 3.5 H POST-ONSET WITH 10% BOLUS OF THE TOTAL DOSE GIVEN AS INITIAL LOADING
     Route: 042
  2. ALTEPLASE [Suspect]
     Active Substance: ALTEPLASE
     Dosage: ADMINISTRATION OF REMAINING DOSE AS AN INFUSION OVER 1 H
     Route: 042
  3. FAVIPIRAVIR [Concomitant]
     Active Substance: FAVIPIRAVIR
     Indication: Product used for unknown indication
  4. LEVOFLOXACIN [Concomitant]
     Active Substance: LEVOFLOXACIN
     Indication: Product used for unknown indication
  5. CEFTRIAXONE [Concomitant]
     Active Substance: CEFTRIAXONE
     Indication: Product used for unknown indication
  6. ENOXAPARIN [Concomitant]
     Active Substance: ENOXAPARIN
     Indication: Product used for unknown indication
     Route: 058

REACTIONS (1)
  - Acute respiratory distress syndrome [Fatal]
